FAERS Safety Report 24182779 (Version 1)
Quarter: 2024Q3

REPORT INFORMATION
  Report Type: Report from Study
  Country: FR (occurrence: FR)
  Receive Date: 20240807
  Receipt Date: 20240807
  Transmission Date: 20241016
  Serious: Yes (Other)
  Sender: AUROBINDO
  Company Number: FR-TEVA-VS-3223741

PATIENT
  Age: 33 Year
  Sex: Female

DRUGS (3)
  1. CLOZAPINE [Suspect]
     Active Substance: CLOZAPINE
     Indication: Product used for unknown indication
     Dosage: UNK
     Route: 065
  2. METHYLPHENIDATE [Suspect]
     Active Substance: METHYLPHENIDATE
     Indication: Product used for unknown indication
     Dosage: UNK
     Route: 065
  3. PAROXETINE [Suspect]
     Active Substance: PAROXETINE
     Indication: Product used for unknown indication
     Dosage: UNK
     Route: 065

REACTIONS (8)
  - Cardiac valve disease [Unknown]
  - Mitral valve prolapse [Unknown]
  - Blood potassium decreased [Unknown]
  - Dizziness [Unknown]
  - Dehydration [Unknown]
  - Nervous system disorder [Unknown]
  - Orthostatic hypotension [Unknown]
  - Tachycardia [Unknown]
